FAERS Safety Report 4570652-4 (Version None)
Quarter: 2005Q1

REPORT INFORMATION
  Report Type: 
  Country: None (occurrence: None)
  Receive Date: 20050204
  Receipt Date: 20050128
  Transmission Date: 20050727
  Serious: Yes (Hospitalization)
  Sender: FDA-Public Use
  Company Number: US-BRISTOL-MYERS SQUIBB COMPANY-12841995

PATIENT

DRUGS (1)
  1. CETUXIMAB [Suspect]
     Indication: NON-SMALL CELL LUNG CANCER
     Dosage: LAST ADMINISTERED ON 17-JAN-2005
     Route: 042

REACTIONS (2)
  - NEUTROPENIA [None]
  - PNEUMONIA [None]
